FAERS Safety Report 24873569 (Version 1)
Quarter: 2025Q1

REPORT INFORMATION
  Report Type: Spontaneous
  Country: IT (occurrence: IT)
  Receive Date: 20250122
  Receipt Date: 20250122
  Transmission Date: 20250408
  Serious: Yes (Life-Threatening, Hospitalization, Other)
  Sender: SANOFI AVENTIS
  Company Number: None

PATIENT
  Age: 86 Year
  Sex: Male

DRUGS (11)
  1. APIDRA [Suspect]
     Active Substance: INSULIN GLULISINE
     Indication: Diabetes mellitus
     Dosage: 15 IU 08:28 A.M. IU 12:28 P.M. IU 08:00 P.M TID
     Route: 058
  2. TOUJEO [Suspect]
     Active Substance: INSULIN GLARGINE
     Indication: Diabetes mellitus
     Dosage: 30 IU 03:00 P.M. QD
     Route: 058
  3. FUROSEMIDE [Concomitant]
     Active Substance: FUROSEMIDE
     Indication: Hypertension
     Dosage: 1 DF, BID
     Route: 048
  4. XARELTO [Concomitant]
     Active Substance: RIVAROXABAN
     Indication: Embolism arterial
     Dosage: 1 DF, QD
     Route: 048
  5. ASPIRIN [Concomitant]
     Active Substance: ASPIRIN
     Indication: Thrombosis prophylaxis
     Dosage: 1 DF, QD
     Route: 048
  6. Luvion [Concomitant]
     Indication: Hypertension
     Dosage: 1 DF, QD
     Route: 048
  7. PANTOPRAZOLE [Concomitant]
     Active Substance: PANTOPRAZOLE
     Indication: Hyperchlorhydria
     Dosage: 1 DF, QD
     Route: 048
  8. ATORVASTATIN [Concomitant]
     Active Substance: ATORVASTATIN
     Indication: Hypercholesterolaemia
     Dosage: 1 DF, QD
     Route: 048
  9. ALLOPURINOL [Concomitant]
     Active Substance: ALLOPURINOL
     Indication: Gout
     Dosage: 1 DF, QD
     Route: 048
  10. ATENOLOL [Concomitant]
     Active Substance: ATENOLOL
     Indication: Ventricular arrhythmia
     Dosage: 1 DF, QD
     Route: 048
  11. SILODOSIN [Concomitant]
     Active Substance: SILODOSIN
     Indication: Benign prostatic hyperplasia
     Dosage: 1 DF, QD

REACTIONS (1)
  - Hyperinsulinaemic hypoglycaemia [Recovering/Resolving]

NARRATIVE: CASE EVENT DATE: 20241123
